FAERS Safety Report 22293555 (Version 1)
Quarter: 2023Q2

REPORT INFORMATION
  Report Type: Spontaneous
  Country: US (occurrence: US)
  Receive Date: 20230508
  Receipt Date: 20230508
  Transmission Date: 20230721
  Serious: Yes (Hospitalization, Other)
  Sender: FDA-Public Use
  Company Number: US-GSKCCFUS-Case-01691875_AE-95462

PATIENT

DRUGS (1)
  1. LAMICTAL [Suspect]
     Active Substance: LAMOTRIGINE
     Indication: Product used for unknown indication
     Dosage: UNK

REACTIONS (5)
  - Gastrectomy [Unknown]
  - Prostate cancer [Unknown]
  - Gastric cancer [Unknown]
  - Dysphagia [Unknown]
  - Nothing by mouth order [Unknown]

NARRATIVE: CASE EVENT DATE: 20230317
